FAERS Safety Report 5311327-3 (Version None)
Quarter: 2007Q2

REPORT INFORMATION
  Report Type: 
  Country: None (occurrence: None)
  Receive Date: 20070430
  Receipt Date: 20070416
  Transmission Date: 20071010
  Serious: Yes (Other)
  Sender: FDA-Public Use
  Company Number: PHBS2007BR06852

PATIENT
  Age: 59 Year
  Sex: Female
  Weight: 88 kg

DRUGS (4)
  1. COMBIPATCH [Suspect]
     Indication: MENOPAUSAL SYMPTOMS
     Dosage: 50/140 MCG EVERY 4 DAYS
     Route: 062
  2. AMITRIL [Suspect]
     Dates: start: 20060201
  3. NAPRIX A [Concomitant]
     Indication: HYPERTENSION
     Dosage: 5/5 MG BID
     Route: 048
  4. MODURETIC 5-50 [Concomitant]
     Indication: HYPERTENSION
     Dosage: 1 DF, QD
     Route: 048

REACTIONS (3)
  - ANXIETY [None]
  - PALPITATIONS [None]
  - WEIGHT INCREASED [None]
